FAERS Safety Report 26064926 (Version 2)
Quarter: 2025Q4

REPORT INFORMATION
  Report Type: Spontaneous
  Country: GB (occurrence: GB)
  Receive Date: 20251119
  Receipt Date: 20251219
  Transmission Date: 20260119
  Serious: Yes (Other)
  Sender: PFIZER
  Company Number: None

PATIENT
  Age: 33 Year
  Sex: Female

DRUGS (2)
  1. VARENICLINE TARTRATE [Suspect]
     Active Substance: VARENICLINE TARTRATE
     Indication: Smoking cessation therapy
     Dosage: 2 MG, 2X/DAY
     Dates: start: 20251103, end: 20251112
  2. FLUOXETINE [Concomitant]
     Active Substance: FLUOXETINE HYDROCHLORIDE
     Indication: Depression
     Dosage: UNK
     Dates: start: 2021

REACTIONS (6)
  - Muscle spasms [Recovered/Resolved]
  - Anxiety [Recovered/Resolved]
  - Paraesthesia [Recovered/Resolved]
  - Dry mouth [Recovered/Resolved]
  - Heart rate abnormal [Recovered/Resolved]
  - Off label use [Unknown]

NARRATIVE: CASE EVENT DATE: 20251103
